FAERS Safety Report 5902065-4 (Version None)
Quarter: 2008Q3

REPORT INFORMATION
  Report Type: 
  Country: None (occurrence: None)
  Receive Date: 20080929
  Receipt Date: 20080917
  Transmission Date: 20090109
  Serious: Yes (Other)
  Sender: FDA-Public Use
  Company Number: US-PFIZER INC-2008064647

PATIENT
  Age: 90 Year
  Sex: Female

DRUGS (2)
  1. LYRICA [Suspect]
     Indication: MUSCLE SPASMS
     Dates: start: 20070807
  2. LYRICA [Suspect]
     Indication: SPINAL COLUMN STENOSIS

REACTIONS (1)
  - SKIN ULCER [None]
